FAERS Safety Report 21200389 (Version 3)
Quarter: 2022Q4

REPORT INFORMATION
  Report Type: Report from Study
  Country: US (occurrence: None)
  Receive Date: 20220811
  Receipt Date: 20221221
  Transmission Date: 20230113
  Serious: Yes (Other)
  Sender: FDA-Public Use
  Company Number: US-Merck Healthcare KGaA-9341792

PATIENT
  Sex: Male

DRUGS (2)
  1. MAVENCLAD [Suspect]
     Active Substance: CLADRIBINE
     Indication: Multiple sclerosis
     Dosage: YEAR ONE MONTH ONE THERAPY: 2 TABLETS ON DAYS 1 TO 5
     Route: 048
     Dates: start: 20220613, end: 20220617
  2. MAVENCLAD [Suspect]
     Active Substance: CLADRIBINE
     Dosage: YEAR ONE MONTH TWO THERAPY: 2 TABLETS ON DAYS 1 TO 5
     Route: 048
     Dates: start: 20220723

REACTIONS (3)
  - Back pain [Unknown]
  - Neck pain [Unknown]
  - Condition aggravated [Unknown]
